FAERS Safety Report 12818606 (Version 2)
Quarter: 2016Q4

REPORT INFORMATION
  Report Type: Spontaneous
  Country: US (occurrence: US)
  Receive Date: 20161006
  Receipt Date: 20161103
  Transmission Date: 20170207
  Serious: No
  Sender: FDA-Public Use
  Company Number: PHEH2016US025582

PATIENT
  Age: 45 Year
  Sex: Male

DRUGS (1)
  1. COSENTYX [Suspect]
     Active Substance: SECUKINUMAB
     Indication: PSORIASIS
     Dosage: UNK UNK, BIW
     Route: 058

REACTIONS (7)
  - Dry mouth [Unknown]
  - Inappropriate schedule of drug administration [Unknown]
  - Hypogeusia [Recovering/Resolving]
  - Plicated tongue [Unknown]
  - Oral candidiasis [Recovering/Resolving]
  - Ageusia [Unknown]
  - Urethritis [Recovered/Resolved]

NARRATIVE: CASE EVENT DATE: 20160701
